FAERS Safety Report 13678915 (Version 1)
Quarter: 2017Q2

REPORT INFORMATION
  Report Type: Spontaneous
  Country: US (occurrence: US)
  Receive Date: 20170622
  Receipt Date: 20170622
  Transmission Date: 20170830
  Serious: Yes (Other)
  Sender: FDA-Public Use
  Company Number: US-COLPAL-COL_26153_2017

PATIENT

DRUGS (2)
  1. COLGATE OPTIC WHITE HIGH IMPACT FLUORIDE [Suspect]
     Active Substance: SODIUM MONOFLUOROPHOSPHATE
     Indication: TOOTH DISCOLOURATION
     Dosage: 1 OR 2 TIMES A DAY, HALF LENGTH OF TOOTHBRUSH
     Route: 048
     Dates: start: 2016, end: 2017
  2. COLGATE OPTIC WHITE HIGH IMPACT FLUORIDE [Suspect]
     Active Substance: SODIUM MONOFLUOROPHOSPHATE
     Indication: DENTAL DISORDER PROPHYLAXIS

REACTIONS (2)
  - Lip and/or oral cavity cancer [Recovering/Resolving]
  - Stomatitis [Not Recovered/Not Resolved]

NARRATIVE: CASE EVENT DATE: 2017
